FAERS Safety Report 10152608 (Version 1)
Quarter: 2014Q2

REPORT INFORMATION
  Report Type: Spontaneous
  Country: US (occurrence: None)
  Receive Date: 20140502
  Receipt Date: 20140502
  Transmission Date: 20141212
  Serious: Yes (Death)
  Sender: FDA-Public Use
  Company Number: None

PATIENT
  Age: 75 Year
  Sex: Male

DRUGS (1)
  1. SUTENT [Suspect]
     Indication: MALIGNANT URINARY TRACT NEOPLASM
     Dosage: 50 MG DAILY FOR 4 WEEKS, OFF FOR 2 ORALLY
     Route: 048
     Dates: start: 20140328, end: 20140408

REACTIONS (1)
  - Haemorrhage [None]
